FAERS Safety Report 16896041 (Version 1)
Quarter: 2019Q4

REPORT INFORMATION
  Report Type: Spontaneous
  Country: PL (occurrence: PL)
  Receive Date: 20191008
  Receipt Date: 20191008
  Transmission Date: 20200122
  Serious: Yes (Other)
  Sender: FDA-Public Use
  Company Number: PL-ELI_LILLY_AND_COMPANY-PL201910000587

PATIENT
  Age: 44 Year
  Sex: Male

DRUGS (4)
  1. GEMCITABINE HYDROCHLORIDE. [Suspect]
     Active Substance: GEMCITABINE HYDROCHLORIDE
     Indication: SOFT TISSUE SARCOMA
     Dosage: UNK UNK, UNKNOWN
     Route: 065
     Dates: start: 20120112, end: 20120606
  2. IFOSFAMIDE. [Suspect]
     Active Substance: IFOSFAMIDE
     Indication: SOFT TISSUE SARCOMA
     Dosage: UNK UNK, UNKNOWN
     Route: 065
     Dates: start: 20130529, end: 20130909
  3. PAZOPANIB [Suspect]
     Active Substance: PAZOPANIB
     Indication: SOFT TISSUE SARCOMA
     Dosage: 800 MG, DAILY
     Route: 065
     Dates: start: 20140917
  4. DOCETAXEL. [Suspect]
     Active Substance: DOCETAXEL
     Indication: SOFT TISSUE SARCOMA
     Dosage: UNK UNK, UNKNOWN
     Route: 065
     Dates: start: 20120112, end: 20120606

REACTIONS (7)
  - Off label use [Unknown]
  - Vomiting [Unknown]
  - Hepatotoxicity [Unknown]
  - Neutropenia [Unknown]
  - Palmar-plantar erythrodysaesthesia syndrome [Unknown]
  - Nausea [Unknown]
  - Malignant neoplasm progression [Unknown]
